FAERS Safety Report 8193594-4 (Version None)
Quarter: 2012Q1

REPORT INFORMATION
  Report Type: 
  Country: None (occurrence: None)
  Receive Date: 20120308
  Receipt Date: 20120223
  Transmission Date: 20120608
  Serious: Yes (Hospitalization)
  Sender: FDA-Public Use
  Company Number: FR-PFIZER INC-2012060909

PATIENT
  Age: 72 Year
  Sex: Female

DRUGS (7)
  1. PRADAXA [Interacting]
     Dosage: 110 MG, 2X/DAY
     Route: 048
     Dates: start: 20111129, end: 20120105
  2. ALISKIREN [Concomitant]
  3. SINOTROM [Interacting]
     Indication: ATRIAL FIBRILLATION
     Dosage: 1 DF, 1X/DAY
     Route: 048
     Dates: end: 20120105
  4. ATORVASTATIN [Concomitant]
  5. CORDARONE [Suspect]
     Indication: ATRIAL FIBRILLATION
     Dosage: 1 TABLET DAILY 5 DAYS PER WEEK
     Route: 048
     Dates: end: 20120105
  6. PLAVIX [Interacting]
     Indication: CORONARY ARTERIAL STENT INSERTION
     Dosage: 75 MG, DAILY
     Route: 048
  7. CELECTOL [Concomitant]

REACTIONS (5)
  - HAEMOGLOBIN DECREASED [None]
  - HAEMATOMA [None]
  - DRUG INTERACTION [None]
  - HAEMATOCRIT DECREASED [None]
  - ACTINIC KERATOSIS [None]
